FAERS Safety Report 6914038-3 (Version None)
Quarter: 2010Q3

REPORT INFORMATION
  Report Type: 
  Country: None (occurrence: None)
  Receive Date: 20100806
  Receipt Date: 20100806
  Transmission Date: 20110219
  Serious: Yes (Other)
  Sender: FDA-Public Use
  Company Number: None

PATIENT
  Age: 24 Year
  Sex: Female
  Weight: 66.6788 kg

DRUGS (2)
  1. MEFLOQUINE HYDROCHLORIDE [Suspect]
     Indication: MALARIA PROPHYLAXIS
     Dosage: 250MG 1/WK ORAL
     Route: 048
     Dates: start: 20090601
  2. PRIMAQUINE [Suspect]
     Indication: MALARIA PROPHYLAXIS
     Dosage: 15MG 2/DAY ORAL
     Route: 048

REACTIONS (8)
  - ANXIETY [None]
  - CHEST PAIN [None]
  - CONFUSIONAL STATE [None]
  - DIZZINESS [None]
  - DYSPNOEA [None]
  - HYPERHIDROSIS [None]
  - PALPITATIONS [None]
  - PARAESTHESIA [None]
